FAERS Safety Report 6672065-8 (Version None)
Quarter: 2010Q2

REPORT INFORMATION
  Report Type: 
  Country: None (occurrence: None)
  Receive Date: 20100407
  Receipt Date: 20100407
  Transmission Date: 20101027
  Serious: Yes (Life-Threatening)
  Sender: FDA-Public Use
  Company Number: None

PATIENT
  Sex: Female
  Weight: 53 kg

DRUGS (1)
  1. CANAKINUMAB [Suspect]
     Indication: JUVENILE ARTHRITIS
     Dosage: 150 MG Q 8 WEEKS SQ
     Route: 058
     Dates: start: 20091101, end: 20100225

REACTIONS (7)
  - ACIDOSIS [None]
  - CONVULSION [None]
  - HYPOXIA [None]
  - RESPIRATORY FAILURE [None]
  - SEPTIC SHOCK [None]
  - UNRESPONSIVE TO STIMULI [None]
  - URINARY TRACT INFECTION [None]
